FAERS Safety Report 5921416-8 (Version None)
Quarter: 2008Q4

REPORT INFORMATION
  Report Type: 
  Country: None (occurrence: None)
  Receive Date: 20081014
  Receipt Date: 20081001
  Transmission Date: 20090506
  Serious: Yes (Hospitalization)
  Sender: FDA-Public Use
  Company Number: 2008BI026206

PATIENT
  Age: 70 Year
  Sex: Female

DRUGS (5)
  1. AVONEX [Suspect]
     Indication: MULTIPLE SCLEROSIS
     Dosage: IM
     Route: 030
     Dates: start: 19960101
  2. FLECAINIDE ACETATE [Concomitant]
  3. ANGIOTENSIN II RECEPTOR BLOCKERS [Concomitant]
  4. .. [Concomitant]
  5. PREV MEDS [Concomitant]

REACTIONS (3)
  - ATRIAL FIBRILLATION [None]
  - CARDIAC DISORDER [None]
  - CARDIAC ENZYMES INCREASED [None]
